FAERS Safety Report 24459005 (Version 1)
Quarter: 2024Q4

REPORT INFORMATION
  Report Type: Spontaneous
  Country: US (occurrence: US)
  Receive Date: 20241018
  Receipt Date: 20241018
  Transmission Date: 20250115
  Serious: No
  Sender: DERMAVANT SCIENCES, INC.
  Company Number: US-Dermavant-001303

PATIENT

DRUGS (1)
  1. VTAMA [Suspect]
     Active Substance: TAPINAROF
     Dates: start: 20240916, end: 20240917

REACTIONS (5)
  - Fatigue [Unknown]
  - Migraine [Unknown]
  - Swelling face [Unknown]
  - Palpitations [Unknown]
  - Skin reaction [Unknown]
